FAERS Safety Report 6877784-6 (Version None)
Quarter: 2010Q3

REPORT INFORMATION
  Report Type: 
  Country: None (occurrence: None)
  Receive Date: 20100727
  Receipt Date: 20091222
  Transmission Date: 20110219
  Serious: No
  Sender: FDA-Public Use
  Company Number: US-ABBOTT-09P-163-0616673-00

PATIENT
  Sex: Male
  Weight: 81.72 kg

DRUGS (4)
  1. SYNTHROID [Suspect]
     Indication: HYPOTHYROIDISM
     Dosage: 1 TAB PER DAY
     Route: 048
     Dates: start: 20091211, end: 20091219
  2. SYNTHROID [Suspect]
     Dosage: 1/2 TAB PER DAY
     Route: 048
     Dates: start: 20091219
  3. AVAPRO [Concomitant]
     Indication: HYPERTENSION
     Dosage: 1.5 TABLETS/DAY
     Route: 048
  4. PROSCAR [Concomitant]
     Indication: BENIGN PROSTATIC HYPERPLASIA

REACTIONS (5)
  - BLOOD PRESSURE INCREASED [None]
  - DIARRHOEA [None]
  - INSOMNIA [None]
  - MALAISE [None]
  - NERVOUSNESS [None]
